FAERS Safety Report 11093497 (Version 1)
Quarter: 2015Q2

REPORT INFORMATION
  Report Type: Spontaneous
  Country: IT (occurrence: None)
  Receive Date: 20150504
  Receipt Date: 20150504
  Transmission Date: 20150821
  Serious: Yes (Other)
  Sender: FDA-Public Use
  Company Number: 2015SA009816

PATIENT
  Age: 51 Year
  Sex: Male

DRUGS (1)
  1. HYDROXYCHLOROQUINE SULFATE. [Suspect]
     Active Substance: HYDROXYCHLOROQUINE SULFATE
     Indication: RHEUMATOID ARTHRITIS
     Dosage: 4 YEARS?1 DOSAGE FORM;TABLET, COATED; ORAL;DAILY
     Route: 048
     Dates: start: 20111101, end: 20140401

REACTIONS (2)
  - Atrial fibrillation [None]
  - Arrhythmia [None]

NARRATIVE: CASE EVENT DATE: 20140401
